FAERS Safety Report 6671377-1 (Version None)
Quarter: 2010Q2

REPORT INFORMATION
  Report Type: 
  Country: None (occurrence: None)
  Receive Date: 20100407
  Receipt Date: 20100401
  Transmission Date: 20101027
  Serious: Yes (Hospitalization)
  Sender: FDA-Public Use
  Company Number: A0853769A

PATIENT
  Age: 55 Year
  Sex: Male

DRUGS (12)
  1. AUGMENTIN '125' [Suspect]
     Indication: DRUG USE FOR UNKNOWN INDICATION
  2. DOUBLE-BLIND STUDY DRUG [Suspect]
     Route: 048
     Dates: start: 20100309, end: 20100322
  3. RADIOTHERAPY [Suspect]
     Indication: DRUG USE FOR UNKNOWN INDICATION
     Route: 050
     Dates: start: 20100309, end: 20100322
  4. CLOTRIMAZOLE [Suspect]
     Indication: DRUG USE FOR UNKNOWN INDICATION
  5. DUONEB [Suspect]
     Indication: DRUG USE FOR UNKNOWN INDICATION
  6. ZOLPIDEM [Suspect]
     Indication: DRUG USE FOR UNKNOWN INDICATION
  7. ALBUTEROL SULFATE AUTOHALER [Suspect]
     Indication: DRUG USE FOR UNKNOWN INDICATION
  8. AMINOSALICYLIC ACID BUFFERED TAB [Suspect]
     Indication: DRUG USE FOR UNKNOWN INDICATION
  9. DEXAMETHASONE [Suspect]
     Indication: DRUG USE FOR UNKNOWN INDICATION
  10. NITROGLYCERIN [Suspect]
     Indication: DRUG USE FOR UNKNOWN INDICATION
  11. OMEPRAZOLE [Suspect]
     Indication: DRUG USE FOR UNKNOWN INDICATION
  12. HYDROMORPHONE HCL [Concomitant]
     Indication: DRUG USE FOR UNKNOWN INDICATION
     Route: 042

REACTIONS (5)
  - CHEST PAIN [None]
  - COUGH [None]
  - DYSPNOEA [None]
  - LEUKOCYTOSIS [None]
  - PNEUMONITIS [None]
